FAERS Safety Report 22669612 (Version 3)
Quarter: 2024Q4

REPORT INFORMATION
  Report Type: Spontaneous
  Country: US (occurrence: US)
  Receive Date: 20230704
  Receipt Date: 20241227
  Transmission Date: 20250114
  Serious: No
  Sender: LEO PHARM
  Company Number: US-LEO Pharma-360371

PATIENT
  Age: 62 Year
  Sex: Female

DRUGS (2)
  1. ADBRY [Suspect]
     Active Substance: TRALOKINUMAB-LDRM
     Indication: Dermatitis atopic
     Dosage: 4 INJECTIONS FOR THE INITIAL DOSE THEN AT  SUBCUTANEOUSLY
     Route: 058
     Dates: start: 202302
  2. ADBRY [Suspect]
     Active Substance: TRALOKINUMAB-LDRM
     Indication: Dermatitis atopic
     Dosage: 2 INJECTIONS (300 MG) EVERY OTHER WEEK
     Route: 058

REACTIONS (2)
  - Therapeutic product effect decreased [Unknown]
  - Blister [Unknown]
